APPROVED DRUG PRODUCT: DOXEPIN HYDROCHLORIDE
Active Ingredient: DOXEPIN HYDROCHLORIDE
Strength: EQ 50MG BASE
Dosage Form/Route: CAPSULE;ORAL
Application: A071673 | Product #001
Applicant: DAVA PHARMACEUTICALS INC
Approved: Jan 5, 1988 | RLD: No | RS: No | Type: DISCN